FAERS Safety Report 6587681-1 (Version None)
Quarter: 2010Q1

REPORT INFORMATION
  Report Type: 
  Country: None (occurrence: None)
  Receive Date: 20100217
  Receipt Date: 20100217
  Transmission Date: 20100710
  Serious: No
  Sender: FDA-Public Use
  Company Number: None

PATIENT
  Age: 43 Year
  Sex: Female
  Weight: 115.6672 kg

DRUGS (2)
  1. RECLAST [Suspect]
     Indication: OSTEOPOROSIS
     Dosage: I.V. ONCE A YEAR IV DRIP
     Route: 041
     Dates: start: 20081101, end: 20081101
  2. RECLAST [Suspect]
     Indication: OSTEOPOROSIS
     Dosage: I.V. ONCE A YEAR IV DRIP
     Route: 041
     Dates: start: 20091201, end: 20091201

REACTIONS (4)
  - DENTAL CARIES [None]
  - PAIN IN JAW [None]
  - TOOTH DISORDER [None]
  - TRISMUS [None]
